FAERS Safety Report 6509568-2 (Version None)
Quarter: 2009Q4

REPORT INFORMATION
  Report Type: 
  Country: None (occurrence: None)
  Receive Date: 20091222
  Receipt Date: 20091214
  Transmission Date: 20100525
  Serious: Yes (Other)
  Sender: FDA-Public Use
  Company Number: US-ROCHE-674584

PATIENT
  Age: 66 Year
  Sex: Female
  Weight: 69.9 kg

DRUGS (9)
  1. BONIVA [Suspect]
     Indication: BONE DISORDER
     Route: 048
     Dates: start: 20091110
  2. PREDNISONE [Suspect]
     Indication: DRUG USE FOR UNKNOWN INDICATION
     Route: 065
  3. LOPRESSOR [Concomitant]
  4. PLAVIX [Concomitant]
  5. ASPIRIN [Concomitant]
  6. PROTONIX [Concomitant]
  7. XANAX [Concomitant]
  8. RESTORIL [Concomitant]
  9. PERCOCET [Concomitant]

REACTIONS (1)
  - SPINAL COMPRESSION FRACTURE [None]
